FAERS Safety Report 19166583 (Version 3)
Quarter: 2022Q2

REPORT INFORMATION
  Report Type: Spontaneous
  Country: SE (occurrence: SE)
  Receive Date: 20210422
  Receipt Date: 20220610
  Transmission Date: 20220721
  Serious: Yes (Death, Other)
  Sender: FDA-Public Use
  Company Number: SE-MPA-2021-025116

PATIENT
  Age: 76 Year
  Sex: Male
  Weight: 80 kg

DRUGS (18)
  1. GEMCITABINE [Suspect]
     Active Substance: GEMCITABINE
     Indication: Pancreatic carcinoma metastatic
     Dosage: 1824 MG, 1000 MG/M2
     Route: 042
     Dates: start: 20210303, end: 20210303
  2. GEMCITABINE [Suspect]
     Active Substance: GEMCITABINE
     Dosage: 1824 MG, 1000 MG/M2
     Route: 042
     Dates: start: 20210310, end: 20210310
  3. GEMCITABINE [Suspect]
     Active Substance: GEMCITABINE
     Dosage: 1824 MG, 1000 MG/M2
     Route: 042
     Dates: start: 20210203, end: 20210203
  4. GEMCITABINE [Suspect]
     Active Substance: GEMCITABINE
     Dosage: 1824 MG, 1000 MG/M2
     Route: 042
     Dates: start: 20210217
  5. COMIRNATY [Suspect]
     Active Substance: TOZINAMERAN
     Indication: Product used for unknown indication
     Dosage: DOS 2 ()
     Route: 065
     Dates: start: 20210205
  6. COMIRNATY [Suspect]
     Active Substance: TOZINAMERAN
     Dosage: DOS 2 ()
     Route: 065
     Dates: start: 20210304
  7. COMIRNATY [Suspect]
     Active Substance: TOZINAMERAN
     Dosage: DOS 2 ()
     Route: 065
     Dates: start: 20210303
  8. Bisoprolol Sandoz 2,5 mg Filmdragerad tablett [Concomitant]
     Indication: Product used for unknown indication
     Dosage: 5 MILLIGRAM, DAILY
     Route: 048
     Dates: start: 20200313
  9. Insuman Basal SoloStar 100 IE/ml Injektionsvatska, suspension i forfyl [Concomitant]
     Indication: Product used for unknown indication
     Dosage: UNK, DAILY, 0+28+0+8 (2)
     Route: 058
     Dates: start: 20200506
  10. Esomeprazol Krka 40 mg Enterokapsel, hard [Concomitant]
     Indication: Product used for unknown indication
     Dosage: 40 MILLIGRAM, DAILY
     Route: 048
     Dates: start: 20200520
  11. Atorbir 40 mg Filmdragerad tablett [Concomitant]
     Indication: Product used for unknown indication
     Dosage: 40 MILLIGRAM, DAILY
     Route: 048
     Dates: start: 20200522
  12. Ondansetron Aurobindo 8 mg Filmdragerad tablett [Concomitant]
     Indication: Product used for unknown indication
     Dosage: 8 MG 1 PA MORGONEN DAG 1 AV CYTOSTATIKABEHANDLING
     Route: 048
     Dates: start: 20210127
  13. Betametason Alternova 0,5 mg Tablett [Concomitant]
     Indication: Product used for unknown indication
     Dosage: 8 TABLETS ON DAY 1 OF CYSTOSTATIC TREATMENT
     Route: 048
     Dates: start: 20210127
  14. Furix 40 mg Tablett [Concomitant]
     Indication: Product used for unknown indication
     Dosage: 40 MILLIGRAM, DAILY
     Route: 048
     Dates: start: 20200522
  15. DIAZEPAM [Concomitant]
     Active Substance: DIAZEPAM
     Indication: Product used for unknown indication
     Dosage: 5 MILLIGRAM, 1 TABLET IF NEEDED FOR THE NIGHT; AS NECESSARY
     Route: 048
     Dates: start: 20210127
  16. ALLOPURINOL [Concomitant]
     Active Substance: ALLOPURINOL
     Indication: Product used for unknown indication
     Dosage: 100 MILLIGRAM, DAILY
     Route: 048
     Dates: start: 20200506
  17. Acetylsalicylsyra Teva 75 mg Tablett [Concomitant]
     Indication: Product used for unknown indication
     Dosage: 75 MILLIGRAM, DAILY
     Route: 048
     Dates: start: 20200522
  18. Sertralin Hexal 100 mg Filmdragerad tablett [Concomitant]
     Indication: Product used for unknown indication
     Dosage: 100 MILLIGRAM, DAILY
     Route: 048
     Dates: start: 20200522

REACTIONS (3)
  - Thrombocytopenia [Fatal]
  - Hepatic failure [Fatal]
  - Renal failure [Fatal]

NARRATIVE: CASE EVENT DATE: 20210316
